FAERS Safety Report 15073326 (Version 2)
Quarter: 2018Q3

REPORT INFORMATION
  Report Type: Report from Study
  Country: CA (occurrence: CA)
  Receive Date: 20180627
  Receipt Date: 20180718
  Transmission Date: 20181010
  Serious: Yes (Hospitalization, Other)
  Sender: FDA-Public Use
  Company Number: PHHY2017CA181596

PATIENT
  Age: 66 Year
  Sex: Female
  Weight: 76.7 kg

DRUGS (11)
  1. ACETAMINOPHEN. [Suspect]
     Active Substance: ACETAMINOPHEN
     Indication: MALIGNANT ASCITES
  2. SPIRONOLACTONE. [Concomitant]
     Active Substance: SPIRONOLACTONE
     Indication: CARDIAC FAILURE
     Dosage: 12.5 MG, QD
     Route: 048
     Dates: start: 20160505, end: 201805
  3. ENTRESTO [Suspect]
     Active Substance: SACUBITRIL\VALSARTAN
     Dosage: 2 DF (SACUBITRIAL 49 MG/ 51 MG VALSARTAN), QD
     Route: 048
     Dates: start: 20170615, end: 20170713
  4. FUROSEMIDE. [Concomitant]
     Active Substance: FUROSEMIDE
     Indication: PRODUCT USED FOR UNKNOWN INDICATION
     Dosage: 60 MG, UNK
     Route: 048
     Dates: start: 20180410, end: 20180416
  5. FUROSEMIDE. [Concomitant]
     Active Substance: FUROSEMIDE
     Indication: PRODUCT USED FOR UNKNOWN INDICATION
     Dosage: UNK
     Route: 042
     Dates: start: 20180430, end: 20180430
  6. ENTRESTO [Suspect]
     Active Substance: SACUBITRIL\VALSARTAN
     Indication: CARDIAC FAILURE
     Dosage: 2 DF (SACUBITRIAL 24 MG/ 26 MG VALSARTAN), QD
     Route: 048
     Dates: start: 20170225, end: 20170614
  7. ATORVASTATIN [Concomitant]
     Active Substance: ATORVASTATIN
     Indication: CARDIAC FAILURE
     Dosage: 10 MG, QD
     Route: 048
     Dates: start: 20161223
  8. CARVEDIOL [Concomitant]
     Active Substance: CARVEDILOL
     Dosage: 12.5 MG, UNK
     Route: 048
     Dates: start: 20180606
  9. ENTRESTO [Suspect]
     Active Substance: SACUBITRIL\VALSARTAN
     Dosage: 2 DF (SACUBITRIAL 97 MG/ 103 MG VALSARTAN), QD
     Route: 048
     Dates: start: 20170714, end: 201805
  10. ACETAMINOPHEN. [Suspect]
     Active Substance: ACETAMINOPHEN
     Indication: PANCREATITIS ACUTE
     Dosage: UNK
     Route: 065
     Dates: start: 20180501
  11. CARVEDIOL [Concomitant]
     Active Substance: CARVEDILOL
     Indication: CARDIAC FAILURE
     Dosage: 31.25 MG, QD
     Route: 048
     Dates: start: 20170204

REACTIONS (22)
  - Pancreatitis acute [Recovered/Resolved]
  - Lipase increased [Unknown]
  - Adenocarcinoma [Recovered/Resolved]
  - Pancreatitis acute [Recovered/Resolved]
  - Pancreatitis acute [Recovered/Resolved]
  - Ureteric injury [Unknown]
  - Fluid overload [Recovering/Resolving]
  - Urinary tract infection [Unknown]
  - Nausea [Unknown]
  - Bacteraemia [Recovered/Resolved]
  - Pancreatitis acute [Recovered/Resolved]
  - Obstructive nephropathy [Unknown]
  - White blood cell count increased [Unknown]
  - Polyuria [Unknown]
  - Hydronephrosis [Recovered/Resolved]
  - Ascites [Not Recovered/Not Resolved]
  - Dyspnoea [Recovering/Resolving]
  - Acute kidney injury [Recovered/Resolved]
  - Malignant ascites [Recovered/Resolved]
  - Klebsiella bacteraemia [Recovered/Resolved]
  - Cardiac failure congestive [Recovered/Resolved]
  - Complication associated with device [Unknown]

NARRATIVE: CASE EVENT DATE: 20171002
